FAERS Safety Report 10034438 (Version 3)
Quarter: 2014Q2

REPORT INFORMATION
  Report Type: Spontaneous
  Country: US (occurrence: None)
  Receive Date: 20140321
  Receipt Date: 20140609
  Transmission Date: 20141212
  Serious: Yes (Hospitalization, Other)
  Sender: FDA-Public Use
  Company Number: UTC-045910

PATIENT
  Age: 70 Year
  Sex: Female
  Weight: 60.3 kg

DRUGS (1)
  1. REMODULIN [Suspect]
     Indication: PULMONARY ARTERIAL HYPERTENSION
     Route: 058
     Dates: start: 20120625

REACTIONS (8)
  - Convulsion [None]
  - Hypoaesthesia [None]
  - Device occlusion [None]
  - Nasopharyngitis [None]
  - Fall [None]
  - Cerebrovascular accident [None]
  - Nasopharyngitis [None]
  - Transient ischaemic attack [None]
